FAERS Safety Report 22359723 (Version 1)
Quarter: 2023Q2

REPORT INFORMATION
  Report Type: Spontaneous
  Country: US (occurrence: None)
  Receive Date: 20230523
  Receipt Date: 20230523
  Transmission Date: 20230721
  Serious: Yes (Other)
  Sender: FDA-Public Use
  Company Number: None

PATIENT
  Age: 85 Year
  Sex: Male

DRUGS (3)
  1. REGADENOSON [Suspect]
     Active Substance: REGADENOSON
     Dosage: OTHER FREQUENCY : ONCE;?
     Route: 040
  2. Tc99m Tetrofosmin Scan [Concomitant]
     Dates: start: 20230425, end: 20230425
  3. Aminophylline 75 mg IV [Concomitant]
     Dates: start: 20230425, end: 20230425

REACTIONS (3)
  - Hypotension [None]
  - Bradycardia [None]
  - Product substitution issue [None]

NARRATIVE: CASE EVENT DATE: 20230425
